FAERS Safety Report 23445160 (Version 2)
Quarter: 2024Q2

REPORT INFORMATION
  Report Type: Report from Study
  Country: US (occurrence: US)
  Receive Date: 20240125
  Receipt Date: 20240510
  Transmission Date: 20240715
  Serious: Yes (Other)
  Sender: FDA-Public Use
  Company Number: US-ABBVIE-5599268

PATIENT
  Sex: Female

DRUGS (1)
  1. SKYRIZI [Suspect]
     Active Substance: RISANKIZUMAB-RZAA
     Indication: Crohn^s disease
     Route: 058
     Dates: start: 20230313

REACTIONS (8)
  - Large intestine perforation [Unknown]
  - Blood test abnormal [Recovering/Resolving]
  - Diarrhoea [Unknown]
  - Liver function test decreased [Recovering/Resolving]
  - Pancreatic enzymes decreased [Recovering/Resolving]
  - Crohn^s disease [Unknown]
  - Non-alcoholic steatohepatitis [Unknown]
  - Stoma creation [Unknown]

NARRATIVE: CASE EVENT DATE: 20230101
